FAERS Safety Report 10897283 (Version 1)
Quarter: 2015Q1

REPORT INFORMATION
  Report Type: Spontaneous
  Country: US (occurrence: US)
  Receive Date: 20150309
  Receipt Date: 20150309
  Transmission Date: 20150721
  Serious: No
  Sender: FDA-Public Use
  Company Number: US-PFIZER INC-2015079723

PATIENT
  Age: 31 Year
  Sex: Female

DRUGS (2)
  1. EFFEXOR [Suspect]
     Active Substance: VENLAFAXINE HYDROCHLORIDE
     Indication: DEPRESSION
     Dosage: UNK
  2. VENLAFAXINE HCL [Suspect]
     Active Substance: VENLAFAXINE HYDROCHLORIDE
     Indication: DEPRESSION
     Dosage: 225 MG, 1X/DAY
     Dates: start: 2014, end: 201411

REACTIONS (7)
  - Tic [Unknown]
  - Vertigo [Unknown]
  - Drug effect incomplete [Recovered/Resolved]
  - Visual impairment [Unknown]
  - Nausea [Unknown]
  - Feeling drunk [Unknown]
  - Tremor [Unknown]

NARRATIVE: CASE EVENT DATE: 2014
